FAERS Safety Report 4923722-2 (Version None)
Quarter: 2006Q1

REPORT INFORMATION
  Report Type: 
  Country: None (occurrence: None)
  Receive Date: 20060224
  Receipt Date: 20060224
  Transmission Date: 20060701
  Serious: Yes (Other)
  Sender: FDA-Public Use
  Company Number: None

PATIENT
  Sex: Female

DRUGS (3)
  1. AREDIA [Suspect]
     Indication: BREAST CANCER
     Dates: start: 20050101, end: 20050201
  2. ZOMETA [Suspect]
     Indication: GASTROINTESTINAL CARCINOMA
     Dates: start: 20060101
  3. ZOMETA [Suspect]
     Indication: HEPATIC NEOPLASM MALIGNANT
     Dates: start: 20060101

REACTIONS (2)
  - OPEN WOUND [None]
  - OSTEONECROSIS [None]
